FAERS Safety Report 4374715-8 (Version None)
Quarter: 2004Q2

REPORT INFORMATION
  Report Type: 
  Country: None (occurrence: None)
  Receive Date: 20040602
  Receipt Date: 20040215
  Transmission Date: 20050107
  Serious: No
  Sender: FDA-Public Use
  Company Number: 200323347BWH

PATIENT
  Age: 61 Year
  Sex: Male
  Weight: 123.3784 kg

DRUGS (7)
  1. LEVITRA [Suspect]
     Indication: ERECTILE DYSFUNCTION
     Dosage: 10 MG, PRN, ORAL : 20 MG, PRN, ORAL : 20 MG, PRN, ORAL
     Route: 048
     Dates: start: 20030910
  2. LEVITRA [Suspect]
     Indication: ERECTILE DYSFUNCTION
     Dosage: 10 MG, PRN, ORAL : 20 MG, PRN, ORAL : 20 MG, PRN, ORAL
     Route: 048
     Dates: start: 20030920
  3. LEVITRA [Suspect]
     Indication: ERECTILE DYSFUNCTION
     Dosage: 10 MG, PRN, ORAL : 20 MG, PRN, ORAL : 20 MG, PRN, ORAL
     Route: 048
     Dates: start: 20030921
  4. HUMULIN 70/30 [Concomitant]
  5. ACTOS [Concomitant]
  6. MONOPRIL [Concomitant]
  7. DOXAZOSIN [Concomitant]

REACTIONS (1)
  - ERECTILE DYSFUNCTION [None]
